FAERS Safety Report 5389958-4 (Version None)
Quarter: 2007Q3

REPORT INFORMATION
  Report Type: 
  Country: None (occurrence: None)
  Receive Date: 20070718
  Receipt Date: 20070130
  Transmission Date: 20080115
  Serious: No
  Sender: FDA-Public Use
  Company Number: A0633737A

PATIENT
  Age: 68 Year
  Sex: Female
  Weight: 104.1 kg

DRUGS (6)
  1. HYCAMTIN [Suspect]
     Indication: DRUG USE FOR UNKNOWN INDICATION
     Dosage: 3MGM2 WEEKLY
     Route: 042
     Dates: start: 20061013
  2. INSULIN [Concomitant]
  3. LIPITOR [Concomitant]
  4. ATENOLOL [Concomitant]
  5. FUROSEMIDE [Concomitant]
  6. COMPAZINE [Concomitant]

REACTIONS (1)
  - LACRIMATION INCREASED [None]
